FAERS Safety Report 7853154 (Version 6)
Quarter: 2012Q4

REPORT INFORMATION
  Report Type: 
  Country: US (occurrence: US)
  Receive Date: 20110311
  Receipt Date: 20121212
  Transmission Date: 20130627
  Serious: Yes (Hospitalization, Other)
  Sender: FDA-Public Use
  Company Number: US-ELI_LILLY_AND_COMPANY-US201102007060

PATIENT
  Age: 76 Year
  Sex: Female
  Weight: 75.28 kg

DRUGS (26)
  1. FORTEO [Suspect]
     Indication: OSTEOPOROSIS
     Dosage: 20 ug, qd
     Route: 058
  2. FORTEO [Suspect]
     Dosage: 20 ug, qd
     Route: 058
  3. FORTEO [Suspect]
     Dosage: 20 ug, qd
     Route: 058
  4. FORTEO [Suspect]
     Dosage: 20 ug, qd
     Route: 058
  5. FORTEO [Suspect]
     Dosage: 20 ug, qd
     Route: 058
  6. FORTEO [Suspect]
     Dosage: 20 ug, qd
     Route: 058
  7. FORTEO [Suspect]
     Dosage: 20 ug, qd
     Route: 058
  8. PREDNISONE [Concomitant]
     Indication: RHEUMATOID ARTHRITIS
     Dosage: UNK, unknown
     Route: 065
  9. SIMVASTATIN [Concomitant]
     Dosage: UNK, unknown
     Route: 065
  10. NIACIN [Concomitant]
     Dosage: UNK, unknown
     Route: 065
  11. CYMBALTA [Concomitant]
     Dosage: 30 mg, qd
     Route: 065
  12. METHOTREXATE [Concomitant]
     Dosage: UNK, unknown
     Route: 065
  13. LEUCOVORIN [Concomitant]
     Dosage: UNK, unknown
     Route: 065
  14. B 1-6-12 [Concomitant]
     Dosage: UNK, unknown
     Route: 065
  15. VITAMIN D NOS [Concomitant]
     Dosage: UNK, unknown
     Route: 065
  16. CALCIUM [Concomitant]
     Dosage: UNK, unknown
     Route: 065
  17. ASA [Concomitant]
     Dosage: UNK, unknown
     Route: 065
  18. NEXIUM [Concomitant]
     Dosage: UNK, unknown
     Route: 065
  19. BENEFIBER [Concomitant]
     Dosage: UNK, unknown
     Route: 065
  20. COQ10 [Concomitant]
     Dosage: UNK, unknown
     Route: 065
  21. LOTREL [Concomitant]
     Dosage: UNK, unknown
     Route: 065
  22. VESICARE [Concomitant]
     Indication: URINARY INCONTINENCE
     Dosage: UNK, unknown
     Route: 065
  23. HUMULIN 70/30 [Concomitant]
     Dosage: UNK, unknown
     Route: 065
  24. HUMIRA [Concomitant]
     Dosage: UNK, unknown
     Route: 065
  25. FOLIC ACID [Concomitant]
     Dosage: UNK, unknown
     Route: 065
  26. INSULIN [Concomitant]
     Dosage: UNK, unknown
     Route: 065

REACTIONS (10)
  - Osteoporotic fracture [Recovering/Resolving]
  - Spinal fracture [Recovered/Resolved]
  - Movement disorder [Recovered/Resolved]
  - Inflammation [Not Recovered/Not Resolved]
  - Back pain [Unknown]
  - Cough [Unknown]
  - Nasopharyngitis [Unknown]
  - Pain [Not Recovered/Not Resolved]
  - Medication error [Unknown]
  - Hypoacusis [Not Recovered/Not Resolved]
